FAERS Safety Report 7499368-1 (Version None)
Quarter: 2011Q2

REPORT INFORMATION
  Report Type: 
  Country: None (occurrence: None)
  Receive Date: 20110524
  Receipt Date: 20110517
  Transmission Date: 20111010
  Serious: Yes (Death, Other)
  Sender: FDA-Public Use
  Company Number: MX-SANOFI-AVENTIS-2011SA030807

PATIENT
  Age: 63 Year
  Sex: Male
  Weight: 78 kg

DRUGS (3)
  1. SHORANT [Suspect]
     Indication: TYPE 2 DIABETES MELLITUS
     Route: 058
     Dates: start: 20070101, end: 20110418
  2. BI-EUGLUCON [Suspect]
     Indication: TYPE 2 DIABETES MELLITUS
     Route: 065
     Dates: end: 20050101
  3. LANTUS [Suspect]
     Indication: TYPE 2 DIABETES MELLITUS
     Route: 058
     Dates: start: 20050101, end: 20110418

REACTIONS (8)
  - HYPERHIDROSIS [None]
  - MYOCARDIAL INFARCTION [None]
  - FATIGUE [None]
  - DYSPNOEA [None]
  - HYPERGLYCAEMIA [None]
  - CHEST PAIN [None]
  - ANXIETY [None]
  - ASTHENIA [None]
